FAERS Safety Report 9477766 (Version 1)
Quarter: 2013Q3

REPORT INFORMATION
  Report Type: Spontaneous
  Country: GB (occurrence: GB)
  Receive Date: 20130827
  Receipt Date: 20130827
  Transmission Date: 20140515
  Serious: Yes (Other)
  Sender: FDA-Public Use
  Company Number: GB-MERCK-1308GBR010464

PATIENT
  Age: 37 Year
  Sex: Female
  Weight: 114.3 kg

DRUGS (2)
  1. MIRTAZAPINE [Suspect]
     Indication: ANXIETY
     Dosage: 15 MG, UNK
     Route: 048
     Dates: start: 20130806, end: 20130807
  2. AMITRIPTYLINE HYDROCHLORIDE [Concomitant]
     Dosage: UNK

REACTIONS (2)
  - Anger [Recovered/Resolved]
  - Aggression [Recovered/Resolved]
